FAERS Safety Report 20329912 (Version 2)
Quarter: 2022Q1

REPORT INFORMATION
  Report Type: Spontaneous
  Country: US (occurrence: US)
  Receive Date: 20220113
  Receipt Date: 20220321
  Transmission Date: 20220423
  Serious: Yes (Other)
  Sender: FDA-Public Use
  Company Number: US-ELI_LILLY_AND_COMPANY-US202201002206

PATIENT
  Age: 55 Year
  Sex: Female

DRUGS (9)
  1. BAQSIMI [Suspect]
     Active Substance: GLUCAGON
     Indication: Blood glucose decreased
     Dosage: 3 MG, UNKNOWN
     Route: 065
     Dates: start: 2020
  2. BAQSIMI [Suspect]
     Active Substance: GLUCAGON
     Indication: Blood glucose decreased
     Dosage: 3 MG, UNKNOWN
     Route: 065
     Dates: start: 2020
  3. BAQSIMI [Suspect]
     Active Substance: GLUCAGON
     Indication: Blood glucose decreased
     Dosage: 3 MG, UNKNOWN
     Route: 065
     Dates: start: 2020
  4. BAQSIMI [Suspect]
     Active Substance: GLUCAGON
     Dosage: 3 MG, UNKNOWN
     Route: 065
     Dates: start: 2020
  5. BAQSIMI [Suspect]
     Active Substance: GLUCAGON
     Dosage: 3 MG, UNKNOWN
     Route: 065
     Dates: start: 2020
  6. BAQSIMI [Suspect]
     Active Substance: GLUCAGON
     Dosage: 3 MG, UNKNOWN
     Route: 065
     Dates: start: 2020
  7. BAQSIMI [Suspect]
     Active Substance: GLUCAGON
     Dosage: 3 MG, UNKNOWN
     Route: 065
     Dates: start: 2020
  8. BAQSIMI [Suspect]
     Active Substance: GLUCAGON
     Dosage: 3 MG, UNKNOWN
     Route: 065
     Dates: start: 2020
  9. BAQSIMI [Suspect]
     Active Substance: GLUCAGON
     Dosage: 3 MG, UNKNOWN
     Route: 065
     Dates: start: 2020

REACTIONS (4)
  - Hypoglycaemic unconsciousness [Recovered/Resolved]
  - Nasal discomfort [Recovered/Resolved]
  - Cataract [Recovering/Resolving]
  - Product dose omission issue [Recovered/Resolved]

NARRATIVE: CASE EVENT DATE: 20211101
